FAERS Safety Report 6689290-2 (Version None)
Quarter: 2010Q2

REPORT INFORMATION
  Report Type: 
  Country: None (occurrence: None)
  Receive Date: 20100420
  Receipt Date: 20100407
  Transmission Date: 20101027
  Serious: Yes (Hospitalization)
  Sender: FDA-Public Use
  Company Number: CH-ELI_LILLY_AND_COMPANY-CH201002005190

PATIENT
  Age: 75 Year
  Sex: Female
  Weight: 88 kg

DRUGS (9)
  1. CYMBALTA [Suspect]
     Dosage: 60 MG, DAILY (1/D), LONG TERM TREATMENT
     Route: 065
  2. CYMBALTA [Suspect]
     Dosage: 30 MG, DAILY (1/D)
     Route: 065
     Dates: end: 20100204
  3. TRAZODONE HCL [Concomitant]
     Dosage: 75 MG, DAILY (1/D), LONG TERM TREATMENT
     Route: 065
     Dates: end: 20100101
  4. TRAZODONE HCL [Concomitant]
     Dosage: 25 MG, UNKNOWN
     Route: 065
     Dates: start: 20100101
  5. DEPAKENE [Concomitant]
     Dosage: 750 MG, DAILY (1/D) (450MG MORNING AND 300MG EVENING), LONG TERM TREATMENT
     Route: 065
  6. EDRONAX [Concomitant]
     Dosage: 4 MG, DAILY (1/D), LONG TERM TREATMENT
     Route: 065
     Dates: end: 20100101
  7. GLUCOPHAGE [Concomitant]
     Dosage: 500 MG, 2/D
     Route: 048
  8. TORSEMIDE [Concomitant]
     Dosage: 10 MG, DAILY (1/D)
     Route: 065
  9. LEVOTHYROXINE [Concomitant]
     Dosage: 50 UG, DAILY (1/D)
     Route: 065

REACTIONS (8)
  - ANXIETY [None]
  - CONFUSIONAL STATE [None]
  - DISORIENTATION [None]
  - DRUG INTERACTION [None]
  - HYPONATRAEMIA [None]
  - INSOMNIA [None]
  - MEMORY IMPAIRMENT [None]
  - RENAL FAILURE ACUTE [None]
